FAERS Safety Report 8419762-1 (Version None)
Quarter: 2012Q2

REPORT INFORMATION
  Report Type: 
  Country: None (occurrence: None)
  Receive Date: 20120607
  Receipt Date: 20120529
  Transmission Date: 20120825
  Serious: Yes (Hospitalization)
  Sender: FDA-Public Use
  Company Number: US-ACTELION-A-NJ2012-66561

PATIENT

DRUGS (3)
  1. SILDENAFIL [Concomitant]
  2. COUMADIN [Concomitant]
  3. EPOPROSTENOL SODIUM [Suspect]
     Indication: PULMONARY ARTERIAL HYPERTENSION
     Dosage: 27.4 NG/KG, PER MIN
     Route: 041
     Dates: start: 20110915

REACTIONS (1)
  - HERNIA REPAIR [None]
